FAERS Safety Report 15948015 (Version 1)
Quarter: 2019Q1

REPORT INFORMATION
  Report Type: Spontaneous
  Country: US (occurrence: US)
  Receive Date: 20190212
  Receipt Date: 20190212
  Transmission Date: 20190417
  Serious: Yes (Hospitalization)
  Sender: FDA-Public Use
  Company Number: None

PATIENT
  Age: 77 Year
  Sex: Female
  Weight: 53.3 kg

DRUGS (1)
  1. TAGRISSO [Suspect]
     Active Substance: OSIMERTINIB
     Indication: ADENOCARCINOMA
     Route: 048
     Dates: start: 20181220, end: 20190118

REACTIONS (4)
  - Pneumonia [None]
  - Pneumonitis [None]
  - Pneumothorax [None]
  - Eosinophilic pneumonia [None]

NARRATIVE: CASE EVENT DATE: 20190118
